FAERS Safety Report 17342489 (Version 1)
Quarter: 2020Q1

REPORT INFORMATION
  Report Type: Spontaneous
  Country: US (occurrence: US)
  Receive Date: 20200129
  Receipt Date: 20200129
  Transmission Date: 20200409
  Serious: No
  Sender: FDA-Public Use
  Company Number: US-ALLERGAN-1906212US

PATIENT
  Age: 31 Year
  Sex: Female

DRUGS (2)
  1. BOTOX COSMETIC [Suspect]
     Active Substance: ONABOTULINUMTOXINA
     Indication: SKIN WRINKLING
     Dosage: 4 UNITS, SINGLE
     Route: 030
     Dates: start: 20190129, end: 20190129
  2. JUVEDERM ULTRA XC [Concomitant]
     Active Substance: HYALURONIC ACID\LIDOCAINE HYDROCHLORIDE
     Indication: SKIN WRINKLING
     Dosage: ACTUAL: 0.55 CC
     Route: 065
     Dates: start: 20190129, end: 20190129

REACTIONS (7)
  - Injection site discolouration [Recovered/Resolved]
  - Contusion [Recovered/Resolved]
  - Tenderness [Recovered/Resolved]
  - Mucosal inflammation [Recovered/Resolved]
  - Swelling [Recovered/Resolved]
  - Vascular compression [Recovered/Resolved]
  - Off label use [Unknown]

NARRATIVE: CASE EVENT DATE: 20190129
